FAERS Safety Report 16810682 (Version 1)
Quarter: 2019Q3

REPORT INFORMATION
  Report Type: Spontaneous
  Country: US (occurrence: US)
  Receive Date: 20190916
  Receipt Date: 20190916
  Transmission Date: 20191005
  Serious: No
  Sender: FDA-Public Use
  Company Number: US-VERTEX PHARMACEUTICALS-2019-006262

PATIENT
  Age: 18 Year
  Sex: Male
  Weight: 56 kg

DRUGS (2)
  1. SYMDEKO [Suspect]
     Active Substance: IVACAFTOR\TEZACAFTOR
     Indication: CYSTIC FIBROSIS
     Dosage: 100 MG TEZACAFTOR/150 MG IVACAFTOR; 150 MG IVACAFTOR TABLETS, BID
     Route: 048
     Dates: start: 20190514
  2. FOCALIN XR ER [Concomitant]
     Dosage: 1 CAPSULE, QD
     Route: 048

REACTIONS (3)
  - Pharyngitis streptococcal [Not Recovered/Not Resolved]
  - Weight decreased [Not Recovered/Not Resolved]
  - Decreased appetite [Not Recovered/Not Resolved]

NARRATIVE: CASE EVENT DATE: 2019
